FAERS Safety Report 23272599 (Version 1)
Quarter: 2023Q4

REPORT INFORMATION
  Report Type: Spontaneous
  Country: GB (occurrence: None)
  Receive Date: 20231206
  Receipt Date: 20231206
  Transmission Date: 20240110
  Serious: Yes (Disabling)
  Sender: FDA-Public Use
  Company Number: None

PATIENT
  Age: 32 Year
  Sex: Female
  Weight: 43.2 kg

DRUGS (1)
  1. CIPROFLOXACIN [Suspect]
     Active Substance: CIPROFLOXACIN
     Indication: Urinary tract infection
     Dosage: 7 TABLETS  TWICE A DAY ORAL
     Route: 048
     Dates: start: 20200817, end: 20200820

REACTIONS (6)
  - Musculoskeletal disorder [None]
  - Tissue injury [None]
  - Nerve injury [None]
  - Immune system disorder [None]
  - Idiopathic environmental intolerance [None]
  - Supportive care [None]

NARRATIVE: CASE EVENT DATE: 20200817
